FAERS Safety Report 5431854-8 (Version None)
Quarter: 2007Q3

REPORT INFORMATION
  Report Type: 
  Country: None (occurrence: None)
  Receive Date: 20070731
  Receipt Date: 20070515
  Transmission Date: 20080115
  Serious: No
  Sender: FDA-Public Use
  Company Number: US200705004216

PATIENT
  Sex: Female

DRUGS (3)
  1. BYETTA [Suspect]
  2. EXENATIDE UNK STRENGTH PEN, [Concomitant]
  3. PEN,DISPOSABLE [Concomitant]

REACTIONS (2)
  - DECREASED APPETITE [None]
  - GASTROENTERITIS VIRAL [None]
